FAERS Safety Report 4964773-1 (Version None)
Quarter: 2006Q2

REPORT INFORMATION
  Report Type: 
  Country: None (occurrence: None)
  Receive Date: 20060406
  Receipt Date: 20060329
  Transmission Date: 20061013
  Serious: Yes (Other)
  Sender: FDA-Public Use
  Company Number: CM-MERCK-0603USA04413

PATIENT
  Age: 43 Year
  Sex: Female

DRUGS (1)
  1. MECTIZAN [Suspect]
     Route: 048
     Dates: start: 20050510

REACTIONS (4)
  - CHILLS [None]
  - FALL [None]
  - FEELING COLD [None]
  - VERTIGO [None]
